FAERS Safety Report 10467063 (Version 1)
Quarter: 2014Q3

REPORT INFORMATION
  Report Type: Spontaneous
  Country: US (occurrence: None)
  Receive Date: 20140919
  Receipt Date: 20140919
  Transmission Date: 20150326
  Serious: No
  Sender: FDA-Public Use
  Company Number: None

PATIENT
  Age: 65 Year
  Sex: Female
  Weight: 107 kg

DRUGS (1)
  1. ENOXAPARIN [Suspect]
     Active Substance: ENOXAPARIN
     Route: 058
     Dates: start: 20140912, end: 20140912

REACTIONS (3)
  - Foot fracture [None]
  - Syringe issue [None]
  - Injury associated with device [None]

NARRATIVE: CASE EVENT DATE: 20140912
